FAERS Safety Report 18749777 (Version 2)
Quarter: 2021Q1

REPORT INFORMATION
  Report Type: Spontaneous
  Country: US (occurrence: US)
  Receive Date: 20210117
  Receipt Date: 20210209
  Transmission Date: 20210419
  Serious: Yes (Death, Life-Threatening)
  Sender: FDA-Public Use
  Company Number: US-CELLTRION INC.-2021US000304

PATIENT

DRUGS (6)
  1. REMICADE [Suspect]
     Active Substance: INFLIXIMAB
     Indication: PNEUMONITIS
     Dosage: 5 MG/KG X 1 DOSE
     Route: 042
     Dates: start: 20110714
  2. PREDNISONE. [Concomitant]
     Active Substance: PREDNISONE
     Dosage: MEDIAN DOSE OF PREDNISONE 75 MG/KG (RANGE: 50?237.5MG/DAY) PRIOR TO RECEIVING ADDITIONAL IMMUNOSUPPR
  3. REMICADE [Suspect]
     Active Substance: INFLIXIMAB
     Dosage: GIVEN 1 DOSE
     Dates: start: 20191112
  4. INFLIXIMAB (UNKNOWN) [Suspect]
     Active Substance: INFLIXIMAB
     Indication: PNEUMONITIS
     Dosage: UNK
  5. IVIG [Concomitant]
     Active Substance: HUMAN IMMUNOGLOBULIN G
     Indication: PNEUMONITIS
     Dosage: 0.5 MG/KG/DAY, ON DAY 2 OF HOSPITAL COURSE/ IVIG X 5 DOSES
     Dates: start: 20191029, end: 20191102
  6. METHYLPREDNISOLONE. [Concomitant]
     Active Substance: METHYLPREDNISOLONE
     Dosage: 4 MG/KG

REACTIONS (3)
  - Pneumonitis [Fatal]
  - Condition aggravated [Fatal]
  - Off label use [Unknown]

NARRATIVE: CASE EVENT DATE: 20191028
